FAERS Safety Report 6698500-7 (Version None)
Quarter: 2010Q2

REPORT INFORMATION
  Report Type: 
  Country: None (occurrence: None)
  Receive Date: 20100427
  Receipt Date: 20100413
  Transmission Date: 20101027
  Serious: Yes (Life-Threatening, Hospitalization)
  Sender: FDA-Public Use
  Company Number: DE-BRACCO-000534

PATIENT
  Sex: Female
  Weight: 80 kg

DRUGS (1)
  1. MULTIHANCE [Suspect]
     Indication: NUCLEAR MAGNETIC RESONANCE IMAGING
     Route: 042
     Dates: start: 20100106, end: 20100106

REACTIONS (3)
  - BRONCHOSPASM [None]
  - HYPOXIA [None]
  - LOSS OF CONSCIOUSNESS [None]
